FAERS Safety Report 8591963-1 (Version None)
Quarter: 2012Q3

REPORT INFORMATION
  Report Type: 
  Country: None (occurrence: None)
  Receive Date: 20120814
  Receipt Date: 20120806
  Transmission Date: 20120928
  Serious: Yes (Other)
  Sender: FDA-Public Use
  Company Number: US-BAYER-2012-046828

PATIENT
  Age: 37 Year
  Sex: Female

DRUGS (1)
  1. MIRENA [Suspect]
     Indication: CONTRACEPTION
     Dosage: 20 MCG/24HR, CONT
     Route: 015
     Dates: start: 20110218, end: 20120402

REACTIONS (7)
  - VAGINAL DISCHARGE [None]
  - MOOD ALTERED [None]
  - URINARY TRACT INFECTION [None]
  - ABDOMINAL PAIN LOWER [None]
  - WEIGHT INCREASED [None]
  - SEXUAL DYSFUNCTION [None]
  - IRRITABILITY [None]
